FAERS Safety Report 15190924 (Version 1)
Quarter: 2018Q3

REPORT INFORMATION
  Report Type: Spontaneous
  Country: GR (occurrence: GR)
  Receive Date: 20180724
  Receipt Date: 20180724
  Transmission Date: 20181010
  Serious: Yes (Other)
  Sender: FDA-Public Use
  Company Number: GR-SA-2018SA196360

PATIENT
  Age: 28 Year
  Sex: Female

DRUGS (1)
  1. LEMTRADA [Suspect]
     Active Substance: ALEMTUZUMAB
     Dosage: UNK
     Dates: start: 201708

REACTIONS (5)
  - Disease recurrence [Recovering/Resolving]
  - Petechiae [Recovering/Resolving]
  - Nuclear magnetic resonance imaging abnormal [Recovering/Resolving]
  - Immune thrombocytopenic purpura [Recovering/Resolving]
  - Platelet count decreased [Recovering/Resolving]
